FAERS Safety Report 6787553-3 (Version None)
Quarter: 2010Q2

REPORT INFORMATION
  Report Type: 
  Country: None (occurrence: None)
  Receive Date: 20100623
  Receipt Date: 20100612
  Transmission Date: 20101027
  Serious: Yes (Death)
  Sender: FDA-Public Use
  Company Number: IR-GENENTECH-303045

PATIENT
  Age: 25 Year
  Sex: Female

DRUGS (1)
  1. MABTHERA [Suspect]
     Indication: SYSTEMIC LUPUS ERYTHEMATOSUS
     Dosage: 1000 MG, DAYS 1+14
     Route: 042
     Dates: start: 20100501

REACTIONS (1)
  - LUNG INFECTION [None]
